FAERS Safety Report 8922617 (Version 1)
Quarter: 2012Q4

REPORT INFORMATION
  Report Type: 
  Country: US (occurrence: US)
  Receive Date: 20121125
  Receipt Date: 20121125
  Transmission Date: 20130627
  Serious: Yes (Hospitalization, Disabling, Other)
  Sender: FDA-Public Use
  Company Number: US-BRISTOL-MYERS SQUIBB COMPANY-17062720

PATIENT
  Age: 70 Year
  Sex: Male

DRUGS (10)
  1. YERVOY [Suspect]
     Indication: METASTATIC MALIGNANT MELANOMA
     Dosage: 2nd dose:12Jan2012 3rd dose:02Feb2012
     Route: 042
     Dates: start: 20111222, end: 20120202
  2. PREDNISONE [Suspect]
     Dates: start: 20110124, end: 201205
  3. ANDROGEL [Concomitant]
  4. ASA [Concomitant]
  5. CARDIAZEM [Concomitant]
  6. FINASTERIDE [Concomitant]
  7. HCTZ [Concomitant]
  8. LISINOPRIL [Concomitant]
  9. PRAVASTATIN SODIUM [Concomitant]
  10. TERAZOSIN [Concomitant]

REACTIONS (3)
  - Colitis [Unknown]
  - Oedema peripheral [Recovered/Resolved]
  - Blood albumin decreased [Unknown]
